FAERS Safety Report 12265236 (Version 4)
Quarter: 2016Q3

REPORT INFORMATION
  Report Type: Report from Study
  Country: CA (occurrence: CA)
  Receive Date: 20160413
  Receipt Date: 20160818
  Transmission Date: 20161109
  Serious: Yes (Other)
  Sender: FDA-Public Use
  Company Number: CA-JNJFOC-20160406031

PATIENT
  Age: 52 Year
  Sex: Male
  Weight: 86.5 kg

DRUGS (20)
  1. REMICADE [Suspect]
     Active Substance: INFLIXIMAB
     Indication: CROHN^S DISEASE
     Route: 042
     Dates: start: 20100329
  2. REMICADE [Suspect]
     Active Substance: INFLIXIMAB
     Indication: RHEUMATOID ARTHRITIS
     Route: 042
     Dates: start: 20100329
  3. OLESTYR [Concomitant]
     Route: 065
  4. TUMS [Concomitant]
     Active Substance: CALCIUM CARBONATE
     Route: 065
  5. VITAMIN D [Concomitant]
     Active Substance: CHOLECALCIFEROL
     Route: 065
  6. POTASSIUM [Concomitant]
     Active Substance: POTASSIUM
     Route: 065
  7. VITAMIN B12 [Concomitant]
     Active Substance: CYANOCOBALAMIN
     Route: 065
  8. REMICADE [Suspect]
     Active Substance: INFLIXIMAB
     Indication: RHEUMATOID ARTHRITIS
     Dosage: INFUSION NUMBER: 49
     Route: 042
     Dates: start: 20160405
  9. ALLOPURINOL. [Concomitant]
     Active Substance: ALLOPURINOL
     Route: 065
  10. COLCHICINE. [Concomitant]
     Active Substance: COLCHICINE
     Route: 065
  11. COVERSYL [Concomitant]
     Active Substance: PERINDOPRIL
     Route: 065
  12. POTASSIUM CITRATE. [Concomitant]
     Active Substance: POTASSIUM CITRATE
     Route: 065
  13. VITAMIN B [Concomitant]
     Active Substance: VITAMIN B
     Route: 065
  14. PREDNISONE. [Concomitant]
     Active Substance: PREDNISONE
     Route: 048
  15. SULFASALAZINE DELAYED-RELEASE [Concomitant]
     Active Substance: SULFASALAZINE
     Route: 065
  16. HYDROCHLORTHIAZID [Concomitant]
     Active Substance: HYDROCHLOROTHIAZIDE
     Route: 065
  17. AMLODIPINE [Concomitant]
     Active Substance: AMLODIPINE BESYLATE
     Route: 065
  18. REMICADE [Suspect]
     Active Substance: INFLIXIMAB
     Indication: CROHN^S DISEASE
     Dosage: INFUSION NUMBER: 49
     Route: 042
     Dates: start: 20160405
  19. PREDNISONE. [Concomitant]
     Active Substance: PREDNISONE
     Route: 048
  20. TAMULOSIN [Concomitant]
     Active Substance: TAMSULOSIN
     Route: 065

REACTIONS (7)
  - Pleurisy [Recovering/Resolving]
  - Pulmonary oedema [Not Recovered/Not Resolved]
  - Off label use [Unknown]
  - Chest discomfort [Unknown]
  - Lower respiratory tract infection [Recovered/Resolved]
  - Renal impairment [Not Recovered/Not Resolved]
  - Product use issue [Unknown]

NARRATIVE: CASE EVENT DATE: 20100329
